FAERS Safety Report 4605793-6 (Version None)
Quarter: 2005Q1

REPORT INFORMATION
  Report Type: 
  Country: None (occurrence: None)
  Receive Date: 20050311
  Receipt Date: 20050120
  Transmission Date: 20050727
  Serious: Yes (Death)
  Sender: FDA-Public Use
  Company Number: US-BRISTOL-MYERS SQUIBB COMPANY-12832267

PATIENT
  Age: 48 Year
  Sex: Female

DRUGS (13)
  1. CARBOPLATIN [Suspect]
     Indication: LUNG CANCER METASTATIC
     Route: 042
     Dates: start: 20041020, end: 20041020
  2. TAXOL [Suspect]
     Indication: LUNG CANCER METASTATIC
     Route: 042
     Dates: start: 20041006, end: 20041020
  3. COUMADIN [Concomitant]
  4. THIAMINE [Concomitant]
  5. PHENERGAN [Concomitant]
  6. POTASSIUM CHLORIDE [Concomitant]
  7. OXYCODONE HCL [Concomitant]
  8. OXYCONTIN [Concomitant]
  9. TRANSDERMAL NICOTINE [Concomitant]
  10. M.V.I. [Concomitant]
  11. ATIVAN [Concomitant]
  12. FOLATE [Concomitant]
  13. TESSALON [Concomitant]

REACTIONS (1)
  - DEATH [None]
